FAERS Safety Report 21480106 (Version 2)
Quarter: 2022Q4

REPORT INFORMATION
  Report Type: Spontaneous
  Country: CO (occurrence: CO)
  Receive Date: 20221019
  Receipt Date: 20221027
  Transmission Date: 20230113
  Serious: Yes (Hospitalization, Other)
  Sender: FDA-Public Use
  Company Number: CO-AMGEN-COLSP2022174874

PATIENT
  Age: 79 Year
  Sex: Male
  Weight: 56 kg

DRUGS (6)
  1. MVASI [Suspect]
     Active Substance: BEVACIZUMAB-AWWB
     Indication: Colon cancer
     Dosage: 285 MILLIGRAM, DAY 1 AND 15
     Route: 065
     Dates: start: 20220609, end: 20220920
  2. OXALIPLATIN [Concomitant]
     Active Substance: OXALIPLATIN
     Indication: Colon cancer
     Dosage: 130 MILLIGRAM, DAY 1 AND 15
     Dates: start: 20220609, end: 20220922
  3. LEUCOVORIN CALCIUM [Concomitant]
     Active Substance: LEUCOVORIN CALCIUM
     Indication: Colon cancer
     Dosage: 600 MILLIGRAM
     Dates: start: 20220609, end: 20220922
  4. FLUOROURACIL [Concomitant]
     Active Substance: FLUOROURACIL
     Dosage: 600 MILLIGRAMC, DAY 1 AND 15
     Dates: start: 20220609, end: 20220922
  5. FLUOROURACIL [Concomitant]
     Active Substance: FLUOROURACIL
     Dosage: 3700 MILLIGRAM, DAY 1 AND 15
     Dates: start: 20220609, end: 20220922
  6. FLUOROURACIL\LEUCOVORIN CALCIUM\OXALIPLATIN [Concomitant]
     Active Substance: FLUOROURACIL\LEUCOVORIN CALCIUM\OXALIPLATIN

REACTIONS (4)
  - Retroperitoneal mass [Unknown]
  - Groin pain [Not Recovered/Not Resolved]
  - Melaena [Not Recovered/Not Resolved]
  - Hypertension [Recovering/Resolving]

NARRATIVE: CASE EVENT DATE: 20220101
